FAERS Safety Report 9201716 (Version 2)
Quarter: 2013Q2

REPORT INFORMATION
  Report Type: Spontaneous
  Country: BR (occurrence: BR)
  Receive Date: 20130401
  Receipt Date: 20130429
  Transmission Date: 20140414
  Serious: Yes (Other)
  Sender: FDA-Public Use
  Company Number: PHHY2013BR030984

PATIENT
  Age: 80 Year
  Sex: Male
  Weight: 121 kg

DRUGS (8)
  1. CODATEN [Suspect]
     Indication: SPINAL DISORDER
     Dosage: 2 DF, DAILY
     Route: 048
  2. CODATEN [Suspect]
     Dosage: 2 DF, DAILY
     Route: 048
  3. CODATEN [Suspect]
     Dosage: 3 DF, DAILY
     Route: 048
     Dates: start: 2008
  4. RIVOTRIL [Suspect]
     Indication: SLEEP DISORDER
     Dosage: 2 MG, DAILY
     Route: 048
  5. ASPIRINA [Suspect]
     Indication: CARDIAC DISORDER
     Dosage: 1 DF, DAILY
     Route: 048
  6. BENICAR [Suspect]
     Indication: CARDIAC DISORDER
     Dosage: 1 DF, DAILY
     Route: 048
  7. CARDIZEM [Suspect]
     Indication: CARDIAC DISORDER
     Dosage: 240 MG, DAILY
     Route: 048
  8. MUSCULARE [Concomitant]
     Indication: MUSCLE RELAXANT THERAPY
     Dosage: 1 DF, QD (1 TABLET AT NIGHT)
     Route: 048

REACTIONS (10)
  - Spinal column injury [Unknown]
  - Wound [Not Recovered/Not Resolved]
  - Pain in extremity [Not Recovered/Not Resolved]
  - Spinal pain [Not Recovered/Not Resolved]
  - Back pain [Not Recovered/Not Resolved]
  - Abasia [Not Recovered/Not Resolved]
  - Moaning [Not Recovered/Not Resolved]
  - Hypertension [Recovered/Resolved]
  - Muscle spasms [Recovered/Resolved]
  - Local swelling [Not Recovered/Not Resolved]
